FAERS Safety Report 18326128 (Version 5)
Quarter: 2020Q4

REPORT INFORMATION
  Report Type: Spontaneous
  Country: NL (occurrence: NL)
  Receive Date: 20200929
  Receipt Date: 20201007
  Transmission Date: 20210113
  Serious: Yes (Death)
  Sender: FDA-Public Use
  Company Number: NL-ROCHE-2686332

PATIENT
  Age: 65 Year
  Sex: Female

DRUGS (3)
  1. GEFITINIB. [Concomitant]
     Active Substance: GEFITINIB
     Indication: ADENOCARCINOMA
     Dates: start: 201710
  2. OSIMERTINIB. [Concomitant]
     Active Substance: OSIMERTINIB
     Dates: start: 201801
  3. TECENTRIQ [Suspect]
     Active Substance: ATEZOLIZUMAB
     Indication: NON-SMALL CELL LUNG CANCER
     Route: 042
     Dates: start: 20190216, end: 20190515

REACTIONS (1)
  - Death [Fatal]

NARRATIVE: CASE EVENT DATE: 20190809
